FAERS Safety Report 8835100 (Version 1)
Quarter: 2012Q4

REPORT INFORMATION
  Report Type: Spontaneous
  Country: None (occurrence: None)
  Receive Date: 20121009
  Receipt Date: 20121009
  Transmission Date: 20130627
  Serious: Yes (Hospitalization, Other)
  Sender: FDA-Public Use
  Company Number: 2012090137

PATIENT
  Age: 47 Year
  Sex: Male

DRUGS (2)
  1. NABILONE [Suspect]
     Indication: PAIN
     Dates: start: 200903
  2. NABILONE [Suspect]
     Indication: PAIN

REACTIONS (32)
  - Treatment noncompliance [None]
  - Incorrect dose administered [None]
  - Impaired work ability [None]
  - Amnesia [None]
  - Delirium [None]
  - Emotional distress [None]
  - Coordination abnormal [None]
  - Clumsiness [None]
  - Speech disorder [None]
  - Insomnia [None]
  - Decreased appetite [None]
  - Weight decreased [None]
  - Abnormal behaviour [None]
  - Activities of daily living impaired [None]
  - Libido disorder [None]
  - Hypersensitivity [None]
  - Ejaculation disorder [None]
  - Disorientation [None]
  - Vision blurred [None]
  - Drug dose omission [None]
  - Cognitive disorder [None]
  - Depression [None]
  - Headache [None]
  - Fluid intake reduced [None]
  - Anxiety [None]
  - Hypertension [None]
  - Illusion [None]
  - Nausea [None]
  - Feeling abnormal [None]
  - Psychotic disorder [None]
  - Neglect of personal appearance [None]
  - Personality change [None]
